FAERS Safety Report 25935080 (Version 1)
Quarter: 2025Q4

REPORT INFORMATION
  Report Type: Spontaneous
  Country: US (occurrence: US)
  Receive Date: 20251017
  Receipt Date: 20251017
  Transmission Date: 20260119
  Serious: No
  Sender: INCYTE
  Company Number: US-INCYTE CORPORATION-2025IN011080

PATIENT
  Age: 59 Year

DRUGS (1)
  1. JAKAFI [Suspect]
     Active Substance: RUXOLITINIB
     Indication: Stem cell transplant
     Dosage: 5 MILLIGRAM, BID

REACTIONS (2)
  - Onychomadesis [Unknown]
  - Off label use [Unknown]
